FAERS Safety Report 23982851 (Version 1)
Quarter: 2024Q2

REPORT INFORMATION
  Report Type: Spontaneous
  Country: AR (occurrence: AR)
  Receive Date: 20240617
  Receipt Date: 20240617
  Transmission Date: 20240716
  Serious: Yes (Life-Threatening, Hospitalization, Other)
  Sender: FDA-Public Use
  Company Number: AR-002147023-NVSC2022AR168535

PATIENT
  Sex: Female

DRUGS (2)
  1. ANAFRANIL [Suspect]
     Active Substance: CLOMIPRAMINE HYDROCHLORIDE
     Indication: Product used for unknown indication
     Dosage: 25 MG START DATE: YEARS AGO
     Route: 065
  2. ANAFRANIL [Suspect]
     Active Substance: CLOMIPRAMINE HYDROCHLORIDE
     Dosage: SPLITS 75 MG IN THREE PARTS, QD, START DATE: APPROXIMATELY ONE AND HALF YEAR AGO
     Route: 065

REACTIONS (16)
  - Vaginal neoplasm [Unknown]
  - Urinary tract infection [Unknown]
  - Dyspnoea [Unknown]
  - Gaze palsy [Unknown]
  - Feeling abnormal [Unknown]
  - Nervousness [Unknown]
  - Uterine leiomyoma [Unknown]
  - Neoplasm malignant [Unknown]
  - Haemorrhage [Unknown]
  - Drug dependence [Unknown]
  - Weight increased [Unknown]
  - Anxiety [Unknown]
  - Wrong technique in product usage process [Unknown]
  - Restlessness [Unknown]
  - Fall [Unknown]
  - Product availability issue [Unknown]

NARRATIVE: CASE EVENT DATE: 20180101
